FAERS Safety Report 7591992-0 (Version None)
Quarter: 2011Q3

REPORT INFORMATION
  Report Type: 
  Country: None (occurrence: None)
  Receive Date: 20110705
  Receipt Date: 20110705
  Transmission Date: 20111222
  Serious: Yes (Hospitalization)
  Sender: FDA-Public Use
  Company Number: None

PATIENT
  Sex: Female
  Weight: 93.6 kg

DRUGS (3)
  1. TAXOTERE [Suspect]
     Dosage: 155 MG
     Dates: end: 20101228
  2. HERCEPTIN [Suspect]
     Dosage: 372 MG
     Dates: end: 20101228
  3. CARBOPLATIN [Suspect]
     Dosage: 470 MG
     Dates: end: 20101228

REACTIONS (11)
  - PEPTIC ULCER [None]
  - DEHYDRATION [None]
  - THROMBOCYTOPENIA [None]
  - HAEMATOCHEZIA [None]
  - DUODENITIS [None]
  - OESOPHAGITIS [None]
  - NAUSEA [None]
  - VOMITING [None]
  - HYPERGLYCAEMIA [None]
  - DIARRHOEA [None]
  - GASTRITIS [None]
